FAERS Safety Report 11740790 (Version 2)
Quarter: 2015Q4

REPORT INFORMATION
  Report Type: Spontaneous
  Country: US (occurrence: US)
  Receive Date: 20151114
  Receipt Date: 20151125
  Transmission Date: 20160304
  Serious: No
  Sender: FDA-Public Use
  Company Number: US-ASTRAZENECA-2015SF06507

PATIENT
  Sex: Female
  Weight: 61.2 kg

DRUGS (26)
  1. VICTOZA [Concomitant]
     Active Substance: LIRAGLUTIDE
  2. VALTREX [Concomitant]
     Active Substance: VALACYCLOVIR HYDROCHLORIDE
     Indication: HERPES ZOSTER
     Dosage: (GENERIC FOR VALTREX), 1MG Q12 HOURS PRN
  3. LUNESTA [Concomitant]
     Active Substance: ESZOPICLONE
     Indication: SLEEP DISORDER
     Dosage: 0.3 MG, GENERIC
  4. MELOXICAM. [Concomitant]
     Active Substance: MELOXICAM
     Indication: LIMB DISCOMFORT
  5. FLUOXETINE [Concomitant]
     Active Substance: FLUOXETINE HYDROCHLORIDE
     Dosage: 40 MG QD, (GENERIC FOR PROZAC)
  6. CYCLOBENZAPRINE [Concomitant]
     Active Substance: CYCLOBENZAPRINE
  7. LEVOCETIRIZINE [Concomitant]
     Active Substance: LEVOCETIRIZINE
     Indication: SINUS DISORDER
  8. ENERGY B12 [Concomitant]
     Dosage: QD
  9. ACETYLCYSTEINE. [Concomitant]
     Active Substance: ACETYLCYSTEINE
  10. BYDUREON [Suspect]
     Active Substance: EXENATIDE
     Indication: DIABETES MELLITUS
     Route: 065
     Dates: start: 201510
  11. LEVOCETIRIZINE [Concomitant]
     Active Substance: LEVOCETIRIZINE
     Indication: SINUS CONGESTION
  12. GUMMY VITAMIN C [Concomitant]
     Dosage: 2/DAY
  13. VITAMIN D3 [Concomitant]
     Active Substance: CHOLECALCIFEROL
     Dosage: QD
  14. CRESTOR [Suspect]
     Active Substance: ROSUVASTATIN CALCIUM
     Route: 048
  15. LORTAB [Concomitant]
     Active Substance: ACETAMINOPHEN\HYDROCODONE BITARTRATE
     Dosage: 10-325 MG QID, PRN
  16. LEVOCETIRIZINE [Concomitant]
     Active Substance: LEVOCETIRIZINE
     Indication: HYPERSENSITIVITY
  17. OMEGA-3 ACIDS [Concomitant]
     Active Substance: OMEGA-3 FATTY ACIDS
     Dosage: 1200 MG QD
  18. METFORMIN [Concomitant]
     Active Substance: METFORMIN HYDROCHLORIDE
  19. MELOXICAM. [Concomitant]
     Active Substance: MELOXICAM
     Indication: BONE DISORDER
  20. ALPRAZOLAM. [Concomitant]
     Active Substance: ALPRAZOLAM
     Indication: ANXIETY
  21. OMEPRAZOLE. [Concomitant]
     Active Substance: OMEPRAZOLE
  22. ALPRAZOLAM. [Concomitant]
     Active Substance: ALPRAZOLAM
     Indication: ANXIETY
  23. NICORETTE [Concomitant]
     Active Substance: NICOTINE
  24. ASPIRIN. [Concomitant]
     Active Substance: ASPIRIN
  25. LYRICA [Concomitant]
     Active Substance: PREGABALIN
  26. FISH OIL [Concomitant]
     Active Substance: FISH OIL
     Dosage: 1200 MG QD

REACTIONS (5)
  - Hyperphagia [Unknown]
  - Decreased appetite [Unknown]
  - Device difficult to use [Unknown]
  - Injection site pain [Unknown]
  - Weight decreased [Unknown]
